FAERS Safety Report 5147279-9 (Version None)
Quarter: 2006Q4

REPORT INFORMATION
  Report Type: 
  Country: None (occurrence: None)
  Receive Date: 20061103
  Receipt Date: 20061021
  Transmission Date: 20070319
  Serious: Yes (Hospitalization, Other)
  Sender: FDA-Public Use
  Company Number: 2006129297

PATIENT
  Age: 39 Year
  Sex: Female
  Weight: 113.3993 kg

DRUGS (4)
  1. RELPAX [Suspect]
     Indication: MIGRAINE
     Dosage: 40MG (AS NECESSARY)
     Dates: start: 20060501
  2. ORTHO CYCLEN-21 [Suspect]
     Indication: CONTRACEPTION
  3. TOPAMAX [Concomitant]
  4. VERAPAMIL [Concomitant]

REACTIONS (2)
  - DEEP VEIN THROMBOSIS [None]
  - PULMONARY EMBOLISM [None]
